FAERS Safety Report 6938136-3 (Version None)
Quarter: 2010Q3

REPORT INFORMATION
  Report Type: 
  Country: None (occurrence: None)
  Receive Date: 20100824
  Receipt Date: 20100812
  Transmission Date: 20110219
  Serious: Yes (Death)
  Sender: FDA-Public Use
  Company Number: PHFR2010GB00980

PATIENT
  Sex: Female
  Weight: 72 kg

DRUGS (14)
  1. ZOMETA [Suspect]
     Indication: HYPERCALCAEMIA OF MALIGNANCY
     Dosage: 4MG
     Route: 042
     Dates: start: 20100526, end: 20100604
  2. PAMIDRONATE DISODIUM [Suspect]
     Indication: HYPERCALCAEMIA OF MALIGNANCY
     Dosage: 60MG DAILY
     Route: 042
     Dates: start: 20100602, end: 20100602
  3. PARACETAMOL [Concomitant]
     Indication: PAIN
     Dosage: 4G DAILY
     Route: 048
  4. OXYCONTIN [Concomitant]
     Dosage: 320MG DAILY
     Route: 048
  5. OMEPRAZOLE [Concomitant]
     Indication: DYSPEPSIA
     Dosage: 20MG DAILY
  6. THALIDOMIDE [Concomitant]
     Indication: MULTIPLE MYELOMA
     Dosage: 50MG DAILY
     Route: 048
  7. FLUOXETINE [Concomitant]
     Indication: DEPRESSION
     Dosage: 20MG DAILY
     Route: 048
  8. ACYCLOVIR [Concomitant]
     Dosage: 800MG DAILY
     Route: 048
  9. BECLOMETHASONE DIPROPIONATE [Concomitant]
     Dosage: 200MCG DAILY
  10. ALBUTEROL SULFATE AUTOHALER [Concomitant]
     Dosage: UNK
  11. SENNA [Concomitant]
     Dosage: 15MG DAILY
     Route: 048
  12. DOCUSATE [Concomitant]
     Dosage: 200 MG, BID
     Route: 048
  13. OXYCODONE HCL [Concomitant]
     Dosage: 20 MG, PRN
     Route: 048
  14. ITRACONAZOLE [Concomitant]
     Dosage: 200 ML, BID
     Route: 048

REACTIONS (2)
  - BLOOD CALCIUM INCREASED [None]
  - MULTIPLE MYELOMA [None]
